FAERS Safety Report 10960793 (Version 1)
Quarter: 2015Q1

REPORT INFORMATION
  Report Type: Spontaneous
  Country: GB (occurrence: None)
  Receive Date: 20150325
  Receipt Date: 20150325
  Transmission Date: 20150721
  Serious: Yes (Other)
  Sender: FDA-Public Use
  Company Number: GB-DEXPHARM-20150182

PATIENT
  Age: 57 Year
  Sex: Female

DRUGS (2)
  1. BALEUM [Concomitant]
  2. OMEPRAZOLE (OMEPERAZOLE) CAPSULE [Suspect]
     Active Substance: OMEPRAZOLE
     Dosage: 1 DF DOSAGE FORM, 2 IN 1 DAYS
     Dates: start: 20150128

REACTIONS (5)
  - Dysphonia [None]
  - Dyspnoea [None]
  - Pruritus generalised [None]
  - Throat tightness [None]
  - Increased upper airway secretion [None]

NARRATIVE: CASE EVENT DATE: 20150306
